FAERS Safety Report 21575961 (Version 5)
Quarter: 2023Q1

REPORT INFORMATION
  Report Type: Report from Study
  Country: JP (occurrence: JP)
  Receive Date: 20221110
  Receipt Date: 20230209
  Transmission Date: 20230418
  Serious: Yes (Hospitalization)
  Sender: FDA-Public Use
  Company Number: JP-CHUGAI-2022043437

PATIENT
  Age: 58 Year
  Sex: Female
  Weight: 43 kg

DRUGS (17)
  1. ATEZOLIZUMAB [Suspect]
     Active Substance: ATEZOLIZUMAB
     Indication: Thymic carcinoma
     Dosage: 1200 MILLIGRAM, ONCE/3WEEKS
     Route: 041
     Dates: start: 20221013
  2. CARBOPLATIN [Suspect]
     Active Substance: CARBOPLATIN
     Indication: Thymic carcinoma
     Dosage: 778 MILLIGRAM, ONCE/3WEEKS
     Route: 042
     Dates: start: 20221013
  3. CARBOPLATIN [Suspect]
     Active Substance: CARBOPLATIN
     Dosage: AUC4.5, ONCE/3WEEKS
     Route: 042
  4. PACLITAXEL [Suspect]
     Active Substance: PACLITAXEL
     Indication: Thymic carcinoma
     Dosage: 276 MILLIGRAM, ONCE/3WEEKS
     Route: 042
     Dates: start: 20221013
  5. PACLITAXEL [Suspect]
     Active Substance: PACLITAXEL
     Dosage: 150 MILLIGRAM/SQ. METER, ONCE/3WEEKS
     Route: 042
  6. ADETPHOS [Concomitant]
     Active Substance: ADENOSINE TRIPHOSPHATE
     Indication: Deafness
     Dosage: 1 GRAM, TID
     Route: 048
     Dates: start: 202210
  7. METHYLCOBALAMIN [Concomitant]
     Active Substance: METHYLCOBALAMIN
     Indication: Deafness
     Dosage: 500 MICROGRAM, TID
     Route: 048
     Dates: start: 202210
  8. NIACINAMIDE\PAPAVERINE HYDROCHLORIDE [Concomitant]
     Active Substance: NIACINAMIDE\PAPAVERINE HYDROCHLORIDE
     Indication: Deafness
     Dosage: 1 DOSAGE FORM, TID
     Route: 048
     Dates: start: 202210
  9. MAGNESIUM OXIDE [Concomitant]
     Active Substance: MAGNESIUM OXIDE
     Indication: Constipation
     Dosage: 1-2TAB/TIME, PRN
     Route: 048
     Dates: start: 20220825
  10. CROMOLYN SODIUM [Concomitant]
     Active Substance: CROMOLYN SODIUM
     Indication: Seasonal allergy
     Dosage: UNK, PRN
     Route: 045
     Dates: start: 202210
  11. MIROGABALIN BESYLATE [Concomitant]
     Active Substance: MIROGABALIN BESYLATE
     Indication: Tumour pain
     Route: 048
     Dates: start: 20221018
  12. OXYCODONE HYDROCHLORIDE [Concomitant]
     Active Substance: OXYCODONE HYDROCHLORIDE
     Indication: Tumour pain
     Route: 048
     Dates: start: 20221018
  13. OXYCODONE HYDROCHLORIDE [Concomitant]
     Active Substance: OXYCODONE HYDROCHLORIDE
     Indication: Tumour pain
     Dosage: 2.5 MILLIGRAM, PRN
     Route: 048
     Dates: start: 20221018
  14. LANSOPRAZOLE [Concomitant]
     Active Substance: LANSOPRAZOLE
     Indication: Gastritis prophylaxis
     Route: 048
     Dates: start: 20221019
  15. SYMPROIC [Concomitant]
     Active Substance: NALDEMEDINE
     Indication: Faecal management
     Dosage: 0.2 MILLIGRAM, QD
     Route: 048
     Dates: start: 20221019
  16. ISOSORBIDE [Concomitant]
     Active Substance: ISOSORBIDE
     Indication: Deafness
     Route: 048
     Dates: start: 20221019
  17. MIANSERIN [Concomitant]
     Active Substance: MIANSERIN
     Indication: Insomnia
     Dosage: 10 MILLIGRAM, PRN
     Route: 048
     Dates: start: 20221019

REACTIONS (2)
  - Febrile neutropenia [Recovered/Resolved]
  - Rash maculo-papular [Recovered/Resolved]

NARRATIVE: CASE EVENT DATE: 20221023
